FAERS Safety Report 8388612 (Version 2)
Quarter: 2014Q2

REPORT INFORMATION
  Report Type: Spontaneous
  Country: US (occurrence: US)
  Receive Date: 20120203
  Receipt Date: 20140508
  Transmission Date: 20141212
  Serious: Yes (Other)
  Sender: FDA-Public Use
  Company Number: US-RANBAXY-2012US-52122

PATIENT
  Age: 21 Year
  Sex: Male

DRUGS (2)
  1. ZOLPIDEM [Suspect]
     Indication: INSOMNIA
     Dosage: 12.5 MG, AT BED TIME
     Route: 065
  2. ALCOHOL [Suspect]
     Indication: PRODUCT USED FOR UNKNOWN INDICATION
     Dosage: UNK
     Route: 048

REACTIONS (4)
  - Somnambulism [Unknown]
  - Dysarthria [Unknown]
  - Blood alcohol abnormal [Unknown]
  - Amnesia [Unknown]
